FAERS Safety Report 8029987-5 (Version None)
Quarter: 2012Q1

REPORT INFORMATION
  Report Type: 
  Country: None (occurrence: None)
  Receive Date: 20120109
  Receipt Date: 20120106
  Transmission Date: 20120608
  Serious: Yes (Other)
  Sender: FDA-Public Use
  Company Number: US-PFIZER INC-2012004944

PATIENT
  Sex: Female
  Weight: 52.608 kg

DRUGS (2)
  1. DRAMAMINE [Suspect]
     Indication: NAUSEA
     Dosage: UNK
  2. CHANTIX [Suspect]
     Indication: SMOKING CESSATION THERAPY
     Dosage: 0.5 MG, DAILY
     Dates: start: 20111201, end: 20120106

REACTIONS (8)
  - DRUG INEFFECTIVE [None]
  - HYPERSOMNIA [None]
  - INSOMNIA [None]
  - CRYING [None]
  - MOOD ALTERED [None]
  - PALPITATIONS [None]
  - ASTHENIA [None]
  - NAUSEA [None]
